FAERS Safety Report 21783726 (Version 2)
Quarter: 2023Q1

REPORT INFORMATION
  Report Type: Report from Study
  Country: CH (occurrence: CH)
  Receive Date: 20221227
  Receipt Date: 20230105
  Transmission Date: 20230417
  Serious: No
  Sender: FDA-Public Use
  Company Number: CH-PFIZER INC-PV202200128963

PATIENT
  Age: 23 Month
  Sex: Male

DRUGS (2)
  1. RIFABUTIN [Suspect]
     Active Substance: RIFABUTIN
     Indication: Atypical mycobacterial lymphadenitis
     Dosage: 5 MG/KG, 1X/DAY
  2. CLARITHROMYCIN [Suspect]
     Active Substance: CLARITHROMYCIN
     Indication: Atypical mycobacterial lymphadenitis
     Dosage: 7.5 MG/KG, 2X/DAY
     Route: 048

REACTIONS (2)
  - Hepatic enzyme increased [Recovered/Resolved]
  - Tooth discolouration [Recovered/Resolved]
